FAERS Safety Report 9690930 (Version 2)
Quarter: 2013Q4

REPORT INFORMATION
  Report Type: Spontaneous
  Country: US (occurrence: US)
  Receive Date: 20131115
  Receipt Date: 20131231
  Transmission Date: 20140711
  Serious: Yes (Other)
  Sender: FDA-Public Use
  Company Number: US-PFIZER INC-2013325647

PATIENT
  Age: 14 Year
  Sex: Female

DRUGS (4)
  1. GENOTROPIN [Suspect]
     Indication: GROWTH HORMONE DEFICIENCY
     Dosage: 1.4 MG, 1X/DAY
     Route: 058
     Dates: start: 20130420, end: 20131024
  2. LEVOTHYROXINE [Concomitant]
     Indication: HYPOTHYROIDISM
     Dosage: 62.5 MG, DAILY
     Dates: start: 20130220
  3. DDAVP [Concomitant]
     Indication: DIABETES INSIPIDUS
     Dosage: 0.1 MG TABS, 1 1/2 TABS 2XDAY
     Dates: start: 20130410
  4. HYDROCORTISONE [Concomitant]
     Indication: ADRENOCORTICOTROPIC HORMONE DEFICIENCY
     Dosage: 6.25 MG, 2X/DAY
     Dates: start: 20131130

REACTIONS (2)
  - Choriocarcinoma [Not Recovered/Not Resolved]
  - Hypothalamo-pituitary disorder [Unknown]
